FAERS Safety Report 4895108-0 (Version None)
Quarter: 2006Q1

REPORT INFORMATION
  Report Type: 
  Country: None (occurrence: None)
  Receive Date: 20060124
  Receipt Date: 20060112
  Transmission Date: 20060701
  Serious: Yes (Disabling)
  Sender: FDA-Public Use
  Company Number: 2006S1000007

PATIENT
  Age: 1 Day
  Sex: Female

DRUGS (1)
  1. SORIATANE [Suspect]
     Dosage: TRPL
     Route: 064

REACTIONS (2)
  - CLEFT LIP AND PALATE [None]
  - TRANSMISSION OF DRUG VIA SEMEN [None]
